FAERS Safety Report 9213701 (Version 1)
Quarter: 2013Q2

REPORT INFORMATION
  Report Type: Spontaneous
  Country: CO (occurrence: CO)
  Receive Date: 20130405
  Receipt Date: 20130405
  Transmission Date: 20140414
  Serious: Yes (Other)
  Sender: FDA-Public Use
  Company Number: CO-UCBSA-082281

PATIENT
  Age: 87 Year
  Sex: Female

DRUGS (3)
  1. CIMZIA [Suspect]
     Indication: RHEUMATOID ARTHRITIS
     Route: 058
     Dates: start: 20121212, end: 20130218
  2. PREDNISOLONE [Concomitant]
  3. ACETAMINOPHEN+CODEINE [Concomitant]
     Dosage: 500MG-30MG/12HOURS

REACTIONS (5)
  - Rash generalised [Recovered/Resolved]
  - Haematoma [Recovered/Resolved]
  - Pruritus [Recovered/Resolved]
  - Pyrexia [Recovered/Resolved]
  - Papule [Recovered/Resolved]
